FAERS Safety Report 9706818 (Version 3)
Quarter: 2014Q1

REPORT INFORMATION
  Report Type: Spontaneous
  Country: DE (occurrence: DE)
  Receive Date: 20131125
  Receipt Date: 20140109
  Transmission Date: 20141002
  Serious: Yes (Death)
  Sender: FDA-Public Use
  Company Number: PHHY2013DE127731

PATIENT
  Age: 57 Year
  Sex: Female

DRUGS (4)
  1. AFINITOR [Suspect]
     Indication: BREAST CANCER
     Dosage: 10 MG, PER DAY
     Route: 048
  2. EXEMESTANE [Suspect]
     Indication: BREAST CANCER
  3. ERIBULIN [Suspect]
     Indication: BREAST CANCER
  4. FASLODEX [Concomitant]

REACTIONS (3)
  - Death [Fatal]
  - Paraesthesia [Recovered/Resolved]
  - Dysphagia [Unknown]
